FAERS Safety Report 19281502 (Version 1)
Quarter: 2021Q2

REPORT INFORMATION
  Report Type: Spontaneous
  Country: US (occurrence: US)
  Receive Date: 20210521
  Receipt Date: 20210521
  Transmission Date: 20210717
  Serious: No
  Sender: FDA-Public Use
  Company Number: US-GILEAD-2021-0530200

PATIENT
  Age: 56 Year
  Sex: Male

DRUGS (5)
  1. METHADONE HYDROCHLORIDE. [Concomitant]
     Active Substance: METHADONE HYDROCHLORIDE
  2. SOFOSBUVIR;VELPATASVIR [Suspect]
     Active Substance: SOFOSBUVIR\VELPATASVIR
     Indication: CHRONIC HEPATITIS C
     Dosage: 1 DOSAGE FORM, QD
     Route: 048
  3. ALBUTEIN [Concomitant]
     Active Substance: ALBUMIN HUMAN
  4. GABAPENTIN. [Concomitant]
     Active Substance: GABAPENTIN
  5. NASAL SPRAY II [Concomitant]

REACTIONS (2)
  - Fatigue [Unknown]
  - Headache [Unknown]
